FAERS Safety Report 7609977 (Version 24)
Quarter: 2020Q4

REPORT INFORMATION
  Report Type: Report from Study
  Country: JP (occurrence: JP)
  Receive Date: 20100928
  Receipt Date: 20201013
  Transmission Date: 20210114
  Serious: Yes (Hospitalization, Other)
  Sender: FDA-Public Use
  Company Number: JP-JNJFOC-20100907113

PATIENT
  Age: 49 Year
  Sex: Male

DRUGS (44)
  1. PREZISTA [Suspect]
     Active Substance: DARUNAVIR ETHANOLATE
     Indication: HIV INFECTION
     Dosage: DARUNAVIR ETHANOLATE:300MG
     Route: 048
     Dates: start: 20061111
  2. ZERIT [Concomitant]
     Active Substance: STAVUDINE
     Indication: HIV INFECTION
     Route: 048
     Dates: start: 19970924, end: 19990818
  3. ZERIT [Concomitant]
     Active Substance: STAVUDINE
     Route: 048
     Dates: start: 20001229, end: 20060410
  4. LEXIVA [Concomitant]
     Active Substance: FOSAMPRENAVIR CALCIUM
     Indication: HIV INFECTION
     Route: 048
     Dates: start: 20051111, end: 20060410
  5. EPIVIR [Concomitant]
     Active Substance: LAMIVUDINE
     Indication: HIV INFECTION
     Route: 048
     Dates: start: 19970924, end: 19990818
  6. URSO [Concomitant]
     Active Substance: URSODIOL
     Route: 048
     Dates: start: 20150826
  7. ADVATE [Concomitant]
     Active Substance: ANTIHEMOPHILIC FACTOR, HUMAN RECOMBINANT
     Dosage: UNKNOWN
     Route: 042
     Dates: start: 20170223, end: 20181127
  8. PARIET [Concomitant]
     Active Substance: RABEPRAZOLE SODIUM
     Route: 048
     Dates: start: 20140319
  9. MUCODYNE [Concomitant]
     Active Substance: CARBOCYSTEINE
     Dosage: UNKNOWN
     Route: 048
     Dates: start: 20170223, end: 20181225
  10. KALETRA [Suspect]
     Active Substance: LOPINAVIR\RITONAVIR
     Indication: HIV INFECTION
     Route: 048
     Dates: start: 20001229, end: 20060410
  11. VIDEX [Suspect]
     Active Substance: DIDANOSINE
     Route: 048
     Dates: start: 19951206, end: 19960313
  12. VIDEX [Suspect]
     Active Substance: DIDANOSINE
     Route: 048
     Dates: start: 19960724, end: 19970924
  13. ADVATE [Concomitant]
     Active Substance: ANTIHEMOPHILIC FACTOR, HUMAN RECOMBINANT
     Indication: FACTOR VIII DEFICIENCY
     Route: 042
     Dates: start: 20100805
  14. ADVATE [Concomitant]
     Active Substance: ANTIHEMOPHILIC FACTOR, HUMAN RECOMBINANT
     Route: 042
     Dates: start: 20140401
  15. PARIET [Concomitant]
     Active Substance: RABEPRAZOLE SODIUM
     Indication: GASTRITIS
     Route: 048
     Dates: start: 20080924, end: 20120331
  16. MUCODYNE [Concomitant]
     Active Substance: CARBOCYSTEINE
     Indication: BRONCHITIS CHRONIC
     Route: 048
     Dates: start: 20090617, end: 20150224
  17. LANOCONAZOLE [Concomitant]
     Active Substance: LANOCONAZOLE
     Indication: TINEA INFECTION
     Dosage: UNKNOWN
     Route: 065
     Dates: start: 20170223
  18. NORVIR [Suspect]
     Active Substance: RITONAVIR
     Route: 048
     Dates: start: 20060411, end: 20110608
  19. ISENTRESS [Suspect]
     Active Substance: RALTEGRAVIR POTASSIUM
     Indication: HIV INFECTION
     Route: 048
     Dates: start: 20080401
  20. VIRACEPT [Concomitant]
     Active Substance: NELFINAVIR MESYLATE
     Indication: HIV INFECTION
     Route: 048
     Dates: start: 19970924, end: 19990818
  21. VIDEX [Suspect]
     Active Substance: DIDANOSINE
     Route: 048
     Dates: start: 19960313, end: 19970924
  22. NORVIR [Suspect]
     Active Substance: RITONAVIR
     Route: 048
     Dates: start: 19990819
  23. NORVIR [Suspect]
     Active Substance: RITONAVIR
     Indication: HIV INFECTION
     Route: 048
     Dates: start: 20000401, end: 20001228
  24. DESCOVY [Suspect]
     Active Substance: EMTRICITABINE\TENOFOVIR ALAFENAMIDE FUMARATE
     Indication: HIV INFECTION
     Route: 048
     Dates: start: 20170223
  25. TRUVADA [Concomitant]
     Active Substance: EMTRICITABINE\TENOFOVIR DISOPROXIL FUMARATE
     Indication: HIV INFECTION
     Route: 048
     Dates: start: 20060411, end: 20170222
  26. INVIRASE [Concomitant]
     Active Substance: SAQUINAVIR MESYLATE
     Indication: HIV INFECTION
     Route: 048
     Dates: start: 19990819, end: 20001228
  27. RETROVIR [Concomitant]
     Active Substance: ZIDOVUDINE
     Indication: HIV INFECTION
     Route: 048
     Dates: start: 19960313, end: 19970924
  28. CROSS EIGHT M [Concomitant]
     Active Substance: ANTIHEMOPHILIC FACTOR HUMAN
     Indication: FACTOR VIII DEFICIENCY
     Dosage: 1000IUX2TIMES/MONTH
     Route: 065
     Dates: end: 20100804
  29. PREZISTA [Suspect]
     Active Substance: DARUNAVIR ETHANOLATE
     Route: 048
     Dates: start: 20170223
  30. INTELENCE [Suspect]
     Active Substance: ETRAVIRINE
     Indication: HIV INFECTION
     Route: 048
     Dates: start: 20081011
  31. URSO [Concomitant]
     Active Substance: URSODIOL
     Indication: LIVER DISORDER
     Route: 048
     Dates: start: 20070401, end: 20150224
  32. ADYNOVATE [Concomitant]
     Active Substance: ANTIHEMOPHILIC FACTOR, HUMAN RECOMBINANT
     Indication: FACTOR VIII DEFICIENCY
     Dosage: UNKNOWN
     Route: 065
     Dates: start: 20181128
  33. STOCRIN [Concomitant]
     Active Substance: EFAVIRENZ
     Indication: HIV INFECTION
     Route: 048
     Dates: start: 19990819, end: 20040331
  34. PROZEI [Concomitant]
     Active Substance: AMPRENAVIR
     Indication: HIV INFECTION
     Route: 048
     Dates: start: 20040401, end: 20051110
  35. VESICARE [Concomitant]
     Active Substance: SOLIFENACIN SUCCINATE
     Indication: PRODUCT USED FOR UNKNOWN INDICATION
     Dosage: UNKNOWN
     Route: 048
     Dates: start: 20191030
  36. ZIAGEN [Concomitant]
     Active Substance: ABACAVIR SULFATE
     Indication: HIV INFECTION
     Route: 048
     Dates: start: 19990819, end: 20001228
  37. LIVACT                             /00847901/ [Concomitant]
     Active Substance: ISOLEUCINE\LEUCINE\VALINE
     Indication: LIVER DISORDER
     Dosage: 1 PACKAGE
     Route: 048
     Dates: start: 20090803
  38. PARIET [Concomitant]
     Active Substance: RABEPRAZOLE SODIUM
     Route: 048
     Dates: start: 20120401, end: 20130821
  39. VIDEX [Suspect]
     Active Substance: DIDANOSINE
     Indication: HIV INFECTION
     Route: 048
     Dates: start: 19951018, end: 19951206
  40. VIDEX [Suspect]
     Active Substance: DIDANOSINE
     Route: 048
     Dates: start: 20001229, end: 20060410
  41. NORVIR [Suspect]
     Active Substance: RITONAVIR
     Indication: HIV INFECTION
     Route: 048
     Dates: start: 19961218, end: 19970924
  42. NORVIR [Suspect]
     Active Substance: RITONAVIR
     Route: 048
     Dates: start: 20110608
  43. INTELENCE [Suspect]
     Active Substance: ETRAVIRINE
     Route: 065
     Dates: start: 20170223
  44. MUCODYNE [Concomitant]
     Active Substance: CARBOCYSTEINE
     Dosage: UNKNOWN
     Route: 048
     Dates: start: 20190227

REACTIONS (6)
  - Anaemia [Not Recovered/Not Resolved]
  - Hyperbilirubinaemia [Recovered/Resolved]
  - Hepatocellular carcinoma [Not Recovered/Not Resolved]
  - Dyslipidaemia [Recovered/Resolved]
  - Osteoporosis [Not Recovered/Not Resolved]
  - Pyelonephritis [Recovered/Resolved]

NARRATIVE: CASE EVENT DATE: 20061128
